FAERS Safety Report 4462101-1 (Version None)
Quarter: 2004Q3

REPORT INFORMATION
  Report Type: 
  Country: None (occurrence: None)
  Receive Date: 20040929
  Receipt Date: 20040921
  Transmission Date: 20050211
  Serious: Yes (Disabling)
  Sender: FDA-Public Use
  Company Number: IN-ABBOTT-04P-078-0274039-00

PATIENT
  Age: 60 Year
  Sex: Male
  Weight: 50 kg

DRUGS (3)
  1. KLACID I.V. [Suspect]
     Indication: DRUG USE FOR UNKNOWN INDICATION
     Route: 042
  2. INSULIN [Concomitant]
     Indication: DIABETES MELLITUS
     Route: 058
     Dates: start: 20040901
  3. ANGIOTENSIN-CONVERTING ENZYME INHIBITORS SUPPORT [Concomitant]
     Indication: DIABETES MELLITUS
     Route: 048
     Dates: start: 20040901

REACTIONS (3)
  - BURNING SENSATION [None]
  - INJECTION SITE PAIN [None]
  - INJECTION SITE PARAESTHESIA [None]
